APPROVED DRUG PRODUCT: ACETAMINOPHEN
Active Ingredient: ACETAMINOPHEN
Strength: 650MG/65ML (10MG/ML)
Dosage Form/Route: SOLUTION;INTRAVENOUS
Application: A214331 | Product #002
Applicant: BAXTER HEALTHCARE CORP
Approved: May 21, 2025 | RLD: No | RS: Yes | Type: RX

EXCLUSIVITY:
Code: PC | Date: Jan 7, 2026